FAERS Safety Report 10160336 (Version 1)
Quarter: 2014Q2

REPORT INFORMATION
  Report Type: Spontaneous
  Country: FR (occurrence: FR)
  Receive Date: 20140508
  Receipt Date: 20140508
  Transmission Date: 20141212
  Serious: Yes (Hospitalization)
  Sender: FDA-Public Use
  Company Number: FR-ELI_LILLY_AND_COMPANY-FR201404008896

PATIENT
  Age: 71 Year
  Sex: Male

DRUGS (2)
  1. ALIMTA [Suspect]
     Dosage: 1000 MG, UNK
     Route: 042
     Dates: start: 20140221, end: 20140221
  2. ALIMTA [Suspect]
     Indication: BRONCHIAL CARCINOMA
     Dosage: UNK
     Route: 065
     Dates: start: 20140131

REACTIONS (3)
  - Monarthritis [Recovered/Resolved]
  - Pancytopenia [Recovered/Resolved]
  - Erysipelas [Recovered/Resolved]
